FAERS Safety Report 13693511 (Version 2)
Quarter: 2017Q2

REPORT INFORMATION
  Report Type: Report from Study
  Country: FR (occurrence: FR)
  Receive Date: 20170627
  Receipt Date: 20170630
  Transmission Date: 20170830
  Serious: Yes (Hospitalization)
  Sender: FDA-Public Use
  Company Number: FR-PFIZER INC-2017275072

PATIENT
  Age: 66 Year
  Sex: Female

DRUGS (10)
  1. STILNOX [Concomitant]
     Active Substance: ZOLPIDEM TARTRATE
     Dosage: 10 MG, 1X/DAY
     Route: 048
  2. MYLOTARG [Suspect]
     Active Substance: GEMTUZUMAB OZOGAMICIN
     Indication: ACUTE MYELOID LEUKAEMIA
     Dosage: UNK, CYCLIC
     Route: 042
     Dates: start: 201704
  3. BROMAZEPAM [Concomitant]
     Active Substance: BROMAZEPAM
     Dosage: 1.5 MG, AS NEEDED (MAXIMUM 3 DAILY)
     Route: 048
  4. TOPALGIC (FRANCE) [Concomitant]
     Active Substance: TRAMADOL
     Dosage: 50 MG, AS NEEDED (MAXIMUM 3 DAILY)
     Route: 048
  5. VANCOMYCINE [Concomitant]
     Active Substance: VANCOMYCIN
     Indication: FEBRILE BONE MARROW APLASIA
  6. FORTUM /00559701/ [Concomitant]
     Active Substance: CEFTAZIDIME
     Indication: FEBRILE BONE MARROW APLASIA
  7. ARACYTINE [Suspect]
     Active Substance: CYTARABINE
     Indication: ACUTE MYELOID LEUKAEMIA
     Dosage: UNK UNK, CYCLIC
     Route: 042
     Dates: start: 201704
  8. CASPOFUNGIN ACETATE. [Concomitant]
     Active Substance: CASPOFUNGIN ACETATE
     Indication: FEBRILE BONE MARROW APLASIA
     Dosage: UNK
  9. FLECAINE LP [Concomitant]
     Active Substance: FLECAINIDE
     Dosage: 100 MG, 1X/DAY
     Route: 048
  10. PIPERACILLINE PANPHARMA [Concomitant]
     Active Substance: PIPERACILLIN SODIUM
     Indication: BACTERAEMIA
     Dosage: 4 G, 3X/DAY
     Route: 042
     Dates: start: 20170521, end: 20170601

REACTIONS (3)
  - Atrial fibrillation [Unknown]
  - Cardiac failure [Unknown]
  - Electrocardiogram repolarisation abnormality [Unknown]

NARRATIVE: CASE EVENT DATE: 20170522
